FAERS Safety Report 4378628-7 (Version None)
Quarter: 2004Q2

REPORT INFORMATION
  Report Type: 
  Country: None (occurrence: None)
  Receive Date: 20040609
  Receipt Date: 20040527
  Transmission Date: 20050107
  Serious: Yes (Other)
  Sender: FDA-Public Use
  Company Number: HQWYE130127MAY04

PATIENT
  Age: 53 Year
  Sex: Male

DRUGS (2)
  1. CORDAREX (AMIODARONE, TABLET) [Suspect]
     Indication: VENTRICULAR TACHYCARDIA
     Dosage: 200 MG 3X PER 1 DAY ORAL
     Route: 048
  2. CORDAREX (AMIODARONE, TABLET) [Suspect]
     Indication: VENTRICULAR TACHYCARDIA
     Dosage: 200 MG 3X PER 1 DAY ORAL
     Route: 048

REACTIONS (5)
  - CANDIDIASIS [None]
  - LUNG INFILTRATION [None]
  - PLEURAL EFFUSION [None]
  - PNEUMONIA CHLAMYDIAL [None]
  - PULMONARY CONGESTION [None]
